FAERS Safety Report 10258407 (Version 1)
Quarter: 2014Q2

REPORT INFORMATION
  Report Type: Spontaneous
  Country: BE (occurrence: BE)
  Receive Date: 20140625
  Receipt Date: 20140625
  Transmission Date: 20141212
  Serious: Yes (Hospitalization)
  Sender: FDA-Public Use
  Company Number: BE-009507513-1406BEL009418

PATIENT
  Age: 75 Year
  Sex: Male

DRUGS (2)
  1. ZOCOR 40 MG, COMPRIM?S PELLICUL?S [Suspect]
     Dosage: 40 MG, DAILY
     Route: 048
     Dates: start: 2010, end: 20140513
  2. ASAFLOW [Concomitant]
     Dosage: 80 MG, DAILY
     Route: 048

REACTIONS (5)
  - Balance disorder [Recovering/Resolving]
  - Gait disturbance [Recovering/Resolving]
  - Limb discomfort [Recovering/Resolving]
  - Limb discomfort [Recovering/Resolving]
  - Memory impairment [Recovering/Resolving]
